FAERS Safety Report 11243399 (Version 1)
Quarter: 2015Q3

REPORT INFORMATION
  Report Type: Spontaneous
  Country: None (occurrence: None)
  Receive Date: 20150702
  Receipt Date: 20150702
  Transmission Date: 20151125
  Serious: Yes (Disabling)
  Sender: FDA-Public Use
  Company Number: None

PATIENT
  Age: 53 Year
  Sex: Male
  Weight: 97.52 kg

DRUGS (1)
  1. RISEDRONATE [Suspect]
     Active Substance: RISEDRONATE SODIUM
     Indication: OSTEOPOROSIS
     Dates: start: 20150601, end: 20150601

REACTIONS (8)
  - Chills [None]
  - Myalgia [None]
  - Sleep disorder due to general medical condition, insomnia type [None]
  - Pain [None]
  - Dysstasia [None]
  - Muscle spasms [None]
  - Arthralgia [None]
  - Impaired work ability [None]

NARRATIVE: CASE EVENT DATE: 20150601
